FAERS Safety Report 18897458 (Version 8)
Quarter: 2021Q4

REPORT INFORMATION
  Report Type: Spontaneous
  Country: JP (occurrence: JP)
  Receive Date: 20210215
  Receipt Date: 20211104
  Transmission Date: 20220303
  Serious: Yes (Hospitalization, Other)
  Sender: FDA-Public Use
  Company Number: JP-ASTELLAS-2021JP002617

PATIENT
  Age: 0 Day
  Sex: Male
  Weight: 3 kg

DRUGS (9)
  1. PROGRAF [Suspect]
     Active Substance: TACROLIMUS
     Indication: Foetal exposure during pregnancy
     Route: 064
     Dates: start: 20201001, end: 20201028
  2. PROGRAF [Suspect]
     Active Substance: TACROLIMUS
     Route: 064
     Dates: start: 20201029, end: 20210202
  3. CIMZIA [Suspect]
     Active Substance: CERTOLIZUMAB PEGOL
     Indication: Foetal exposure during pregnancy
     Route: 064
     Dates: start: 20200728, end: 20200813
  4. CIMZIA [Suspect]
     Active Substance: CERTOLIZUMAB PEGOL
     Route: 064
     Dates: start: 20200827, end: 20201130
  5. AZULFIDINE [Concomitant]
     Active Substance: SULFASALAZINE
     Indication: Foetal exposure during pregnancy
     Dosage: UNK UNK, UNKNOWN FREQ.
     Route: 064
     Dates: start: 2017, end: 2018
  6. AZULFIDINE [Concomitant]
     Active Substance: SULFASALAZINE
     Route: 064
     Dates: start: 201907, end: 20210202
  7. CALONAL [Concomitant]
     Active Substance: ACETAMINOPHEN
     Indication: Foetal exposure during pregnancy
     Route: 064
     Dates: start: 20200714, end: 20201204
  8. CLONAZEPAM [Concomitant]
     Active Substance: CLONAZEPAM
     Indication: Foetal exposure during pregnancy
     Dosage: UNK UNK, UNKNOWN FREQ.
     Route: 064
     Dates: start: 20200728
  9. PREDNISOLONE [Concomitant]
     Active Substance: PREDNISOLONE
     Indication: Foetal exposure during pregnancy
     Route: 064
     Dates: start: 20201201

REACTIONS (5)
  - Hypoxia [Recovered/Resolved]
  - Umbilical hernia [Not Recovered/Not Resolved]
  - Hydrocele [Not Recovered/Not Resolved]
  - Foetal exposure during pregnancy [Unknown]
  - Exposure via breast milk [Unknown]

NARRATIVE: CASE EVENT DATE: 20201205
